FAERS Safety Report 7245979-8 (Version None)
Quarter: 2011Q1

REPORT INFORMATION
  Report Type: 
  Country: None (occurrence: None)
  Receive Date: 20110126
  Receipt Date: 20110113
  Transmission Date: 20110831
  Serious: Yes (Hospitalization, Other)
  Sender: FDA-Public Use
  Company Number: ES-CELGENEUS-144-21880-10110348

PATIENT
  Sex: Female
  Weight: 71 kg

DRUGS (5)
  1. REVLIMID [Suspect]
     Route: 048
     Dates: start: 20101011, end: 20101115
  2. REVLIMID [Suspect]
     Indication: MULTIPLE MYELOMA
     Route: 048
     Dates: start: 20100614
  3. DEXAMETHASONE [Suspect]
     Route: 048
     Dates: start: 20101108, end: 20101110
  4. ASA [Concomitant]
     Indication: THROMBOSIS PROPHYLAXIS
     Route: 048
  5. DEXAMETHASONE [Suspect]
     Indication: MULTIPLE MYELOMA
     Route: 048
     Dates: start: 20100614

REACTIONS (3)
  - FEBRILE NEUTROPENIA [None]
  - DEMENTIA [None]
  - TOXIC ENCEPHALOPATHY [None]
